FAERS Safety Report 24701154 (Version 1)
Quarter: 2024Q4

REPORT INFORMATION
  Report Type: Spontaneous
  Country: US (occurrence: US)
  Receive Date: 20241205
  Receipt Date: 20241205
  Transmission Date: 20250115
  Serious: Yes (Hospitalization)
  Sender: MYLAN
  Company Number: US-MYLANLABS-2024M1107299

PATIENT
  Age: 97 Year
  Sex: Female

DRUGS (9)
  1. ACETAMINOPHEN [Suspect]
     Active Substance: ACETAMINOPHEN
     Indication: Analgesic therapy
     Dosage: UNK
     Route: 065
  2. ACETAMINOPHEN [Suspect]
     Active Substance: ACETAMINOPHEN
     Indication: Pain
  3. ACETAMINOPHEN [Suspect]
     Active Substance: ACETAMINOPHEN
     Indication: Rectal prolapse
  4. FENTANYL [Suspect]
     Active Substance: FENTANYL
     Indication: Analgesic therapy
     Dosage: 25 MICROGRAM, QH
     Route: 062
  5. FENTANYL [Suspect]
     Active Substance: FENTANYL
     Indication: Pain
  6. FENTANYL [Suspect]
     Active Substance: FENTANYL
     Indication: Rectal prolapse
  7. DIPYRONE [Suspect]
     Active Substance: DIPYRONE
     Indication: Analgesic therapy
     Dosage: UNK
     Route: 065
  8. DIPYRONE [Suspect]
     Active Substance: DIPYRONE
     Indication: Pain
  9. DIPYRONE [Suspect]
     Active Substance: DIPYRONE
     Indication: Rectal prolapse

REACTIONS (1)
  - Treatment failure [Unknown]
